FAERS Safety Report 5894466-8 (Version None)
Quarter: 2008Q3

REPORT INFORMATION
  Report Type: 
  Country: None (occurrence: None)
  Receive Date: 20080923
  Receipt Date: 20080923
  Transmission Date: 20090109
  Serious: Yes (Hospitalization)
  Sender: FDA-Public Use
  Company Number: None

PATIENT
  Sex: Female
  Weight: 35 kg

DRUGS (9)
  1. LENALIDOMIDE [Suspect]
     Indication: HODGKIN'S DISEASE
     Dosage: 25MG/DAY PO
     Route: 048
     Dates: start: 20071106
  2. NEXIUM [Concomitant]
  3. VORICONAZOLE [Concomitant]
  4. BACTRIM [Concomitant]
  5. ACYCLOVIR [Concomitant]
  6. FENTANYL [Concomitant]
  7. ZOLOFT [Concomitant]
  8. ZOFRAN [Concomitant]
  9. VICODIN [Concomitant]

REACTIONS (4)
  - DEHYDRATION [None]
  - HAEMATEMESIS [None]
  - HYPOPHAGIA [None]
  - NIGHT SWEATS [None]
